FAERS Safety Report 15696024 (Version 4)
Quarter: 2019Q1

REPORT INFORMATION
  Report Type: Report from Study
  Country: EC (occurrence: EC)
  Receive Date: 20181206
  Receipt Date: 20190325
  Transmission Date: 20190417
  Serious: Yes (Life-Threatening, Hospitalization, Other)
  Sender: FDA-Public Use
  Company Number: PHHY2018EC074858

PATIENT
  Age: 60 Year
  Sex: Female
  Weight: 60 kg

DRUGS (2)
  1. LEVOTHYROXINE. [Suspect]
     Active Substance: LEVOTHYROXINE
     Indication: THYROID MASS
     Dosage: 0.5 MG, UNK
     Route: 065
     Dates: start: 20180517
  2. SANDOSTATIN LAR DEPOT [Suspect]
     Active Substance: OCTREOTIDE ACETATE
     Indication: NEUROENDOCRINE TUMOUR
     Dosage: 20 MG, QMO
     Route: 030
     Dates: start: 20161212

REACTIONS (21)
  - Thyroid mass [Unknown]
  - Gastrointestinal infection [Recovered/Resolved]
  - Kidney infection [Recovered/Resolved]
  - Hepatic steatosis [Unknown]
  - Vomiting [Recovered/Resolved]
  - Depression [Not Recovered/Not Resolved]
  - Malaise [Unknown]
  - Dysuria [Not Recovered/Not Resolved]
  - Blood count abnormal [Recovering/Resolving]
  - Hepatic pain [Recovered/Resolved]
  - Renal pain [Recovered/Resolved]
  - Hypothyroidism [Unknown]
  - Diarrhoea [Recovering/Resolving]
  - Asthenia [Recovering/Resolving]
  - Vomiting [Recovered/Resolved]
  - Gait disturbance [Unknown]
  - Metastases to liver [Unknown]
  - Abdominal pain upper [Recovered/Resolved]
  - Blood potassium decreased [Recovered/Resolved]
  - Abdominal pain upper [Recovered/Resolved]
  - Fatigue [Not Recovered/Not Resolved]

NARRATIVE: CASE EVENT DATE: 20180522
